FAERS Safety Report 7623892-1 (Version None)
Quarter: 2011Q3

REPORT INFORMATION
  Report Type: 
  Country: None (occurrence: None)
  Receive Date: 20110720
  Receipt Date: 20110714
  Transmission Date: 20111222
  Serious: Yes (Hospitalization)
  Sender: FDA-Public Use
  Company Number: JP-PFIZER INC-2011085758

PATIENT
  Age: 45 Year
  Sex: Male
  Weight: 51 kg

DRUGS (6)
  1. TEGRETOL [Concomitant]
  2. LORAZEPAM [Concomitant]
  3. ISENTRESS [Concomitant]
  4. NONACOG ALFA [Suspect]
     Indication: FACTOR IX DEFICIENCY
     Dosage: 2000 IU, 2X/WEEK
     Route: 042
     Dates: start: 20100422
  5. ALEVIATIN [Concomitant]
  6. SELBEX [Concomitant]

REACTIONS (2)
  - MUSCLE HAEMORRHAGE [None]
  - GAIT DISTURBANCE [None]
